FAERS Safety Report 19265625 (Version 6)
Quarter: 2021Q3

REPORT INFORMATION
  Report Type: Report from Study
  Country: US (occurrence: US)
  Receive Date: 20210517
  Receipt Date: 20210920
  Transmission Date: 20211014
  Serious: Yes (Other)
  Sender: FDA-Public Use
  Company Number: US-PFIZER INC-2021349072

PATIENT
  Age: 61 Year
  Sex: Female

DRUGS (3)
  1. IBRANCE [Suspect]
     Active Substance: PALBOCICLIB
     Dosage: 100 MG, DAILY FOR 21 DAYS, OFF 7 DAYS
     Route: 048
     Dates: start: 20210528
  2. FULVESTRANT INJECTION [Concomitant]
     Active Substance: FULVESTRANT
     Dosage: UNK
     Dates: start: 20210528
  3. IBRANCE [Suspect]
     Active Substance: PALBOCICLIB
     Indication: BREAST CANCER FEMALE
     Dosage: 125 MG, DAILY FOR 21 DAYS, OFF 7 DAYS
     Route: 048
     Dates: start: 20210312, end: 20210402

REACTIONS (12)
  - Rash [Unknown]
  - Oral pain [Unknown]
  - Eczema [Unknown]
  - White blood cell count decreased [Unknown]
  - Myelosuppression [Recovered/Resolved]
  - Fatigue [Not Recovered/Not Resolved]
  - Epistaxis [Recovered/Resolved]
  - Leukopenia [Unknown]
  - Dyspnoea exertional [Not Recovered/Not Resolved]
  - Red blood cell count decreased [Unknown]
  - Dry skin [Unknown]
  - Platelet count decreased [Unknown]

NARRATIVE: CASE EVENT DATE: 2021
